FAERS Safety Report 16642553 (Version 2)
Quarter: 2019Q3

REPORT INFORMATION
  Report Type: Spontaneous
  Country: US (occurrence: US)
  Receive Date: 20190729
  Receipt Date: 20190827
  Transmission Date: 20191004
  Serious: No
  Sender: FDA-Public Use
  Company Number: US-009507513-1907USA014423

PATIENT
  Age: 22 Year
  Sex: Female

DRUGS (1)
  1. NEXPLANON [Suspect]
     Active Substance: ETONOGESTREL
     Indication: CONTRACEPTION
     Dosage: ONE TIME BY PRESCRIBER
     Route: 059
     Dates: start: 201907

REACTIONS (2)
  - Menstruation delayed [Unknown]
  - Adverse event [Unknown]

NARRATIVE: CASE EVENT DATE: 201907
